FAERS Safety Report 5452397-1 (Version None)
Quarter: 2007Q3

REPORT INFORMATION
  Report Type: 
  Country: None (occurrence: None)
  Receive Date: 20070914
  Receipt Date: 20070912
  Transmission Date: 20080115
  Serious: Yes (Hospitalization)
  Sender: FDA-Public Use
  Company Number: FR-BRISTOL-MYERS SQUIBB COMPANY-13906615

PATIENT
  Sex: Female

DRUGS (5)
  1. AMIKLIN POWDER [Suspect]
     Dates: start: 20070518, end: 20070518
  2. CLAFORAN [Suspect]
     Route: 042
     Dates: start: 20070518, end: 20070518
  3. CLAMOXYL [Suspect]
     Route: 042
     Dates: start: 20070518, end: 20070518
  4. CALCIUM GLUCONATE [Suspect]
     Dosage: CALCIUM GLUCONATE + GLUCOSE 10% IS GIVEN AS INJECTION.
     Dates: start: 20070518, end: 20070518
  5. GLUCOSE 10% [Suspect]
     Dosage: CALCIUM GLUCONATE + GLUCOSE 10% IS GIVEN AS INJECTION.
     Dates: start: 20070518, end: 20070518

REACTIONS (1)
  - SKIN NECROSIS [None]
